FAERS Safety Report 11258214 (Version 1)
Quarter: 2015Q2

REPORT INFORMATION
  Report Type: Spontaneous
  Country: US (occurrence: None)
  Receive Date: 20150617
  Receipt Date: 20150617
  Transmission Date: 20150821
  Serious: No
  Sender: FDA-Public Use
  Company Number: 2014TASUS000595

PATIENT
  Age: 55 Year
  Sex: Male

DRUGS (10)
  1. SYMBICORT [Concomitant]
     Active Substance: BUDESONIDE\FORMOTEROL FUMARATE DIHYDRATE
  2. SIMVASTATIN. [Concomitant]
     Active Substance: SIMVASTATIN
  3. VERAPAMIL (VERAPAMIL HYDROCHLORIDE) [Concomitant]
  4. DHEA [Concomitant]
     Active Substance: DEHYDROEPIANDROSTERONE-3-SULFATE SODIUM
  5. NIACIN. [Concomitant]
     Active Substance: NIACIN
  6. CLARITIN [Concomitant]
     Active Substance: LORATADINE
  7. THEODUR (THEOPHYLLINE) [Concomitant]
  8. AMLODIPINE (AMLODIPINE BESILATE) [Concomitant]
  9. SAW PALMETTO [Concomitant]
     Active Substance: SAW PALMETTO
  10. HETLIOZ [Suspect]
     Active Substance: TASIMELTEON
     Indication: CIRCADIAN RHYTHM SLEEP DISORDER
     Route: 048
     Dates: start: 201406, end: 201408

REACTIONS (1)
  - Insomnia [None]

NARRATIVE: CASE EVENT DATE: 201406
